FAERS Safety Report 23708963 (Version 3)
Quarter: 2024Q2

REPORT INFORMATION
  Report Type: Spontaneous
  Country: US (occurrence: US)
  Receive Date: 20240404
  Receipt Date: 20240502
  Transmission Date: 20240716
  Serious: No
  Sender: FDA-Public Use
  Company Number: US-PFIZER INC-PV202400043015

PATIENT
  Age: 48 Year
  Sex: Male

DRUGS (1)
  1. INLYTA [Suspect]
     Active Substance: AXITINIB
     Dosage: 5 MG

REACTIONS (7)
  - Peripheral coldness [Unknown]
  - Neoplasm progression [Unknown]
  - Tumour pain [Unknown]
  - Neck pain [Unknown]
  - Arthralgia [Unknown]
  - Urticaria [Recovered/Resolved]
  - Rash [Recovered/Resolved]
